FAERS Safety Report 8760868 (Version 2)
Quarter: 2012Q4

REPORT INFORMATION
  Report Type: 
  Country: US (occurrence: US)
  Receive Date: 20120830
  Receipt Date: 20120919
  Transmission Date: 20130627
  Serious: Yes (Hospitalization)
  Sender: FDA-Public Use
  Company Number: US-009507513-1208USA009879

PATIENT
  Sex: Female

DRUGS (1)
  1. ZIOPTAN [Suspect]
     Indication: GLAUCOMA
     Dosage: 2 Gtt, hs
     Route: 047
     Dates: start: 2012, end: 2012

REACTIONS (2)
  - Headache [Unknown]
  - Exposure during pregnancy [Unknown]
